FAERS Safety Report 13638558 (Version 3)
Quarter: 2017Q2

REPORT INFORMATION
  Report Type: Report from Study
  Country: DE (occurrence: DE)
  Receive Date: 20170609
  Receipt Date: 20170623
  Transmission Date: 20170830
  Serious: Yes (Other)
  Sender: FDA-Public Use
  Company Number: PHHY2017DE081749

PATIENT
  Sex: Female
  Weight: 89.5 kg

DRUGS (2)
  1. AFINITOR [Suspect]
     Active Substance: EVEROLIMUS
     Indication: BREAST CANCER METASTATIC
     Dosage: 10 MG, QD
     Route: 048
     Dates: start: 20131018, end: 20150213
  2. EXEMESTANE. [Suspect]
     Active Substance: EXEMESTANE
     Indication: BREAST CANCER
     Dosage: 25 MG, QD
     Route: 048
     Dates: start: 20131118, end: 20150213

REACTIONS (14)
  - Back pain [Recovered/Resolved]
  - Stomatitis [Recovered/Resolved]
  - Hypokalaemia [Recovered/Resolved]
  - Anaemia [Unknown]
  - Fatigue [Recovered/Resolved]
  - Omphalitis [Recovered/Resolved]
  - Peripheral swelling [Unknown]
  - Musculoskeletal pain [Recovered/Resolved]
  - Muscle spasms [Recovered/Resolved]
  - Night sweats [Unknown]
  - Neck pain [Recovered/Resolved]
  - Cough [Recovered/Resolved]
  - Dyspnoea [Recovered/Resolved]
  - Myosclerosis [Recovered/Resolved]

NARRATIVE: CASE EVENT DATE: 20140207
